FAERS Safety Report 8591687-0 (Version None)
Quarter: 2012Q3

REPORT INFORMATION
  Report Type: 
  Country: None (occurrence: None)
  Receive Date: 20120814
  Receipt Date: 20120807
  Transmission Date: 20120928
  Serious: Yes (Other)
  Sender: FDA-Public Use
  Company Number: EG-AMGEN-EGYSP2012049509

PATIENT
  Age: 40 Month
  Sex: Male

DRUGS (3)
  1. ROMIPLOSTIM [Suspect]
     Dosage: 3 MUG/KG, QWK
  2. ROMIPLOSTIM [Suspect]
     Indication: IDIOPATHIC THROMBOCYTOPENIC PURPURA
     Dosage: 1 MUG/KG, QWK
  3. ROMIPLOSTIM [Suspect]
     Dosage: 7 MUG/KG, QWK

REACTIONS (3)
  - TRAUMATIC HAEMATOMA [None]
  - EPISTAXIS [None]
  - NO THERAPEUTIC RESPONSE [None]
